FAERS Safety Report 11920902 (Version 1)
Quarter: 2016Q1

REPORT INFORMATION
  Report Type: Spontaneous
  Country: US (occurrence: US)
  Receive Date: 20160115
  Receipt Date: 20160115
  Transmission Date: 20160526
  Serious: No
  Sender: FDA-Public Use
  Company Number: US-ASTELLAS-2015US034714

PATIENT
  Sex: Male

DRUGS (1)
  1. MYRBETRIQ [Suspect]
     Active Substance: MIRABEGRON
     Indication: TRANSURETHRAL PROSTATECTOMY
     Route: 065
     Dates: start: 201509, end: 201509

REACTIONS (2)
  - Off label use [Unknown]
  - Blood glucose increased [Not Recovered/Not Resolved]
